FAERS Safety Report 12792737 (Version 1)
Quarter: 2016Q3

REPORT INFORMATION
  Report Type: Spontaneous
  Country: US (occurrence: US)
  Receive Date: 20160929
  Receipt Date: 20160929
  Transmission Date: 20161109
  Serious: No
  Sender: FDA-Public Use
  Company Number: US-JAZZ-2016-US-011546

PATIENT
  Sex: Male

DRUGS (19)
  1. FISH OIL [Concomitant]
     Active Substance: FISH OIL
  2. LORATADINE. [Concomitant]
     Active Substance: LORATADINE
  3. MODAFINIL. [Concomitant]
     Active Substance: MODAFINIL
  4. MELOXICAM. [Concomitant]
     Active Substance: MELOXICAM
  5. CIPRO [Concomitant]
     Active Substance: CIPROFLOXACIN HYDROCHLORIDE
  6. WELLBUTRIN [Concomitant]
     Active Substance: BUPROPION HYDROCHLORIDE
  7. XYREM [Suspect]
     Active Substance: SODIUM OXYBATE
     Dosage: DOSE ADJUSTMENTS
     Route: 048
     Dates: start: 201507, end: 201507
  8. ANDROGEL [Concomitant]
     Active Substance: TESTOSTERONE
  9. MULTIVITAMINS [Concomitant]
     Active Substance: VITAMINS
  10. NALTREXONE [Concomitant]
     Active Substance: NALTREXONE
  11. ABACAVIR. [Concomitant]
     Active Substance: ABACAVIR
  12. EFAVIRENZ [Concomitant]
     Active Substance: EFAVIRENZ
  13. DESONIDE. [Concomitant]
     Active Substance: DESONIDE
  14. XYREM [Suspect]
     Active Substance: SODIUM OXYBATE
     Dosage: 4.5 G, BID
     Route: 048
     Dates: start: 201507
  15. METHYLPHENIDATE. [Concomitant]
     Active Substance: METHYLPHENIDATE
  16. TRIAMCINOLONE [Concomitant]
     Active Substance: TRIAMCINOLONE
  17. TRIZIVIR [Concomitant]
     Active Substance: ABACAVIR SULFATE\LAMIVUDINE\ZIDOVUDINE
  18. XYREM [Suspect]
     Active Substance: SODIUM OXYBATE
     Indication: NARCOLEPSY
     Dosage: 2.5 G, BID
     Route: 048
     Dates: start: 201507, end: 201507
  19. BUPROPION HCL [Concomitant]
     Active Substance: BUPROPION HYDROCHLORIDE

REACTIONS (3)
  - Thirst [Not Recovered/Not Resolved]
  - Blood pressure increased [Not Recovered/Not Resolved]
  - Hunger [Not Recovered/Not Resolved]
